FAERS Safety Report 19306042 (Version 4)
Quarter: 2021Q3

REPORT INFORMATION
  Report Type: Other
  Country: NL (occurrence: NL)
  Receive Date: 20210526
  Receipt Date: 20210707
  Transmission Date: 20211014
  Serious: Yes (Hospitalization, Other)
  Sender: FDA-Public Use
  Company Number: NL-ASPP-GLO2021NL003942

PATIENT

DRUGS (16)
  1. MACROGOL [Concomitant]
     Active Substance: POLYETHYLENE GLYCOLS
     Indication: PROPHYLAXIS
     Dosage: UNK
     Route: 065
     Dates: start: 20210318
  2. ISATUXIMAB [Suspect]
     Active Substance: ISATUXIMAB
     Indication: PLASMA CELL MYELOMA
     Dosage: 713 MILLIGRAM
     Route: 042
     Dates: start: 20210322, end: 20210413
  3. LENALIDOMIDE [Suspect]
     Active Substance: LENALIDOMIDE
     Indication: PLASMA CELL MYELOMA
     Dosage: 10 MG
     Route: 048
     Dates: start: 20210322, end: 20210412
  4. PAMIDRONIC ACID [Concomitant]
     Active Substance: PAMIDRONIC ACID
     Indication: PROPHYLAXIS
     Dosage: UNK
     Route: 065
     Dates: start: 20210319
  5. AMLODIPINE [Concomitant]
     Active Substance: AMLODIPINE BESYLATE
     Indication: PRODUCT USED FOR UNKNOWN INDICATION
     Dosage: 5 MG
     Route: 065
     Dates: start: 20210304
  6. BISOPROLOL [Concomitant]
     Active Substance: BISOPROLOL
     Indication: HYPERTENSION
     Dosage: UNK
     Route: 065
     Dates: start: 20140905
  7. OXYCODON [Concomitant]
     Active Substance: OXYCODONE
     Indication: PROPHYLAXIS
     Dosage: UNK
     Route: 065
     Dates: start: 20210318
  8. TRAMADOL. [Concomitant]
     Active Substance: TRAMADOL
     Indication: PLASMA CELL MYELOMA
     Dosage: UNK
     Route: 065
     Dates: start: 20210311
  9. VALACICLOVIR [Concomitant]
     Active Substance: VALACYCLOVIR HYDROCHLORIDE
     Indication: PROPHYLAXIS
     Dosage: UNK
     Route: 065
     Dates: start: 20210324, end: 20210402
  10. CIPROXIN [Concomitant]
     Active Substance: CIPROFLOXACIN
     Indication: PROPHYLAXIS
     Dosage: 500 MG
     Route: 065
     Dates: start: 20210324, end: 20210402
  11. FLUCONAZOL [Concomitant]
     Active Substance: FLUCONAZOLE
     Indication: PROPHYLAXIS
     Dosage: UNK
     Route: 065
     Dates: start: 20210324, end: 20210402
  12. LASIX [Concomitant]
     Active Substance: FUROSEMIDE
     Indication: ADVERSE EVENT
     Dosage: UNK
     Route: 065
     Dates: start: 20210322, end: 20210322
  13. PARACETAMOL [Concomitant]
     Active Substance: ACETAMINOPHEN
     Indication: PLASMA CELL MYELOMA
     Dosage: UNK
     Route: 065
     Dates: start: 20210304
  14. DEXAMETHASONE. [Suspect]
     Active Substance: DEXAMETHASONE
     Indication: PLASMA CELL MYELOMA
     Dosage: 40 MILLIGRAM
     Route: 048
     Dates: start: 20210322, end: 20210412
  15. CARFILZOMIB [Suspect]
     Active Substance: CARFILZOMIB
     Indication: PLASMA CELL MYELOMA
     Dosage: 101 MG
     Route: 042
     Dates: start: 20210322, end: 20210405
  16. CARBASALAT CALCIUM VIATRIS [Concomitant]
     Indication: PRODUCT USED FOR UNKNOWN INDICATION
     Dosage: UNK
     Route: 065
     Dates: start: 20210323

REACTIONS (2)
  - Renal failure [Not Recovered/Not Resolved]
  - Tumour lysis syndrome [Recovered/Resolved]

NARRATIVE: CASE EVENT DATE: 20210415
